FAERS Safety Report 19771510 (Version 1)
Quarter: 2021Q3

REPORT INFORMATION
  Report Type: Spontaneous
  Country: US (occurrence: US)
  Receive Date: 20210901
  Receipt Date: 20210901
  Transmission Date: 20211014
  Serious: No
  Sender: FDA-Public Use
  Company Number: None

PATIENT
  Age: 44 Year
  Sex: Male
  Weight: 126 kg

DRUGS (4)
  1. LAMOTRIGINE 600 MG [Concomitant]
  2. ALPRAZOLAM 0.5 MG TO 1 MG PRN [Concomitant]
  3. RAMELTEON [Suspect]
     Active Substance: RAMELTEON
     Indication: INSOMNIA
     Dosage: ?          QUANTITY:1 TABLET(S);?
     Route: 048
     Dates: start: 20210204, end: 20210901
  4. GABAPENTIN 1200 MG [Concomitant]

REACTIONS (11)
  - Hyperhidrosis [None]
  - Product substitution issue [None]
  - Chest pain [None]
  - Respiration abnormal [None]
  - Nausea [None]
  - Muscle spasms [None]
  - Contusion [None]
  - Panic attack [None]
  - Tachycardia [None]
  - Agitation [None]
  - Fear of death [None]

NARRATIVE: CASE EVENT DATE: 20210901
